FAERS Safety Report 4490522-X (Version None)
Quarter: 2004Q4

REPORT INFORMATION
  Report Type: 
  Country: None (occurrence: None)
  Receive Date: 20041102
  Receipt Date: 20041022
  Transmission Date: 20050328
  Serious: Yes (Other)
  Sender: FDA-Public Use
  Company Number: SE-BRISTOL-MYERS SQUIBB COMPANY-12740171

PATIENT
  Age: 57 Year
  Sex: Female

DRUGS (1)
  1. PARAPLATIN [Suspect]
     Indication: OVARIAN CANCER
     Dates: start: 20030513, end: 20030722

REACTIONS (1)
  - OSTEOARTHRITIS [None]
